FAERS Safety Report 7392272-9 (Version None)
Quarter: 2011Q2

REPORT INFORMATION
  Report Type: 
  Country: None (occurrence: None)
  Receive Date: 20110404
  Receipt Date: 20110324
  Transmission Date: 20111010
  Serious: Yes (Other)
  Sender: FDA-Public Use
  Company Number: US-ASTRAZENECA-2010SE38347

PATIENT
  Age: 65 Year
  Sex: Female

DRUGS (2)
  1. CLONAZPAM [Concomitant]
     Indication: ANXIETY
  2. SEROQUEL [Suspect]
     Indication: SLEEP DISORDER
     Route: 048

REACTIONS (3)
  - WEIGHT INCREASED [None]
  - LIGAMENT RUPTURE [None]
  - ELECTROLYTE IMBALANCE [None]
